FAERS Safety Report 7579538-4 (Version None)
Quarter: 2011Q2

REPORT INFORMATION
  Report Type: 
  Country: None (occurrence: None)
  Receive Date: 20110629
  Receipt Date: 20110624
  Transmission Date: 20111010
  Serious: Yes (Life-Threatening, Other)
  Sender: FDA-Public Use
  Company Number: JP-JNJFOC-20110402634

PATIENT
  Sex: Female
  Weight: 70 kg

DRUGS (5)
  1. DECADRON [Concomitant]
     Indication: OVARIAN CANCER
     Route: 041
     Dates: start: 20110330, end: 20110330
  2. DOXORUBICIN HCL [Suspect]
     Indication: OVARIAN CANCER
     Route: 042
     Dates: start: 20110330, end: 20110330
  3. GLUCOSE [Concomitant]
     Indication: OVARIAN CANCER
     Route: 041
     Dates: start: 20110330, end: 20110330
  4. CARBOPLATIN [Suspect]
     Indication: PRODUCT USED FOR UNKNOWN INDICATION
     Route: 065
  5. SEROTONE [Concomitant]
     Indication: OVARIAN CANCER
     Route: 041
     Dates: start: 20110330, end: 20110330

REACTIONS (3)
  - INFUSION RELATED REACTION [None]
  - HYPOTENSION [None]
  - RESPIRATORY ARREST [None]
